FAERS Safety Report 6754735-6 (Version None)
Quarter: 2010Q2

REPORT INFORMATION
  Report Type: 
  Country: None (occurrence: None)
  Receive Date: 20100603
  Receipt Date: 20100526
  Transmission Date: 20101027
  Serious: Yes (Other)
  Sender: FDA-Public Use
  Company Number: DE-ABBOTT-10P-062-0647064-00

PATIENT
  Age: 24 Year
  Sex: Female

DRUGS (4)
  1. ERGYNYL CHRONO [Suspect]
     Indication: EPILEPSY
     Route: 048
     Dates: start: 20100420
  2. ERGYNYL CHRONO [Suspect]
     Route: 048
  3. PETINUTIN [Concomitant]
     Indication: EPILEPSY
  4. OXCARBAZEPINE [Concomitant]
     Indication: EPILEPSY

REACTIONS (5)
  - COGWHEEL RIGIDITY [None]
  - GAIT DISTURBANCE [None]
  - MUSCLE RIGIDITY [None]
  - PARKINSON'S DISEASE [None]
  - TREMOR [None]
